FAERS Safety Report 6370101-X (Version None)
Quarter: 2009Q3

REPORT INFORMATION
  Report Type: 
  Country: None (occurrence: None)
  Receive Date: 20090923
  Receipt Date: 20070516
  Transmission Date: 20100115
  Serious: Yes (Other)
  Sender: FDA-Public Use
  Company Number: US-ASTRAZENECA-2006UW20957

PATIENT
  Age: 642 Month
  Sex: Male
  Weight: 93 kg

DRUGS (37)
  1. SEROQUEL [Suspect]
     Indication: SLEEP DISORDER
     Route: 048
     Dates: start: 20040115, end: 20050101
  2. SEROQUEL [Suspect]
     Indication: DEPRESSION
     Route: 048
     Dates: start: 20040115, end: 20050101
  3. SEROQUEL [Suspect]
     Route: 048
     Dates: start: 20040115, end: 20050101
  4. SEROQUEL [Suspect]
     Indication: ANXIETY
     Route: 048
     Dates: start: 20040115, end: 20050101
  5. SEROQUEL [Suspect]
     Indication: INSOMNIA
     Route: 048
     Dates: start: 20040115, end: 20050101
  6. TRAZADON [Concomitant]
     Indication: ANXIETY
  7. TRAZADON [Concomitant]
     Indication: DEPRESSION
  8. NITROSTAT [Concomitant]
     Indication: CHEST PAIN
     Route: 048
  9. NEURONTIN [Concomitant]
     Route: 048
  10. VICODIN [Concomitant]
     Dosage: 3- 4 TABLETS PER DAY
     Route: 048
  11. ZOCOR [Concomitant]
     Route: 065
  12. CELEBRAX [Concomitant]
     Dosage: 100 MG-200 MG
     Route: 065
  13. DESYREL [Concomitant]
     Route: 065
  14. FLONASE [Concomitant]
     Route: 045
  15. PROTONIX [Concomitant]
     Route: 048
  16. ROZEREM [Concomitant]
     Indication: INSOMNIA
     Route: 048
  17. CIALIS [Concomitant]
     Route: 048
  18. RISPERDAL [Concomitant]
     Route: 048
  19. ZOLOFT [Concomitant]
     Route: 048
  20. CODEINE SUL TAB [Concomitant]
     Indication: PAIN
     Route: 048
  21. ALBUTEROL [Concomitant]
     Route: 065
  22. CIPROFLAXACIN [Concomitant]
     Route: 048
  23. VARDENAFIL HYDROCHLORIDE [Concomitant]
     Route: 048
  24. TEMAZEPAM [Concomitant]
     Route: 048
  25. OXYCODONE AND ACETAMINAPHEN [Concomitant]
     Dosage: 5 MG/ 325 MG
     Route: 048
  26. MONTELUKAST SODIUM [Concomitant]
     Route: 048
  27. METRONIDAZOLE [Concomitant]
     Indication: INFECTION
     Route: 048
  28. METOPROLOL TARTRATE [Concomitant]
     Route: 048
  29. METHOCARBAMOL [Concomitant]
     Indication: MUSCLE SPASMS
     Route: 048
  30. METFORMIN HYDROCHLORIDE [Concomitant]
     Route: 048
  31. LORATADINE [Concomitant]
     Indication: MULTIPLE ALLERGIES
     Route: 048
  32. LEVALBUTEROL HCL [Concomitant]
     Indication: DYSPNOEA
     Route: 048
  33. IPRATROPIUM BROMIDE [Concomitant]
     Dosage: 17 MCG-18 MCG, 2 PUFFS BY MOUTH 4 TIMES A DAY
     Route: 048
  34. GEMFIBROZIL [Concomitant]
     Route: 048
  35. FLUNISOLIDE [Concomitant]
     Dosage: 25 MCG, 2 SPRAYS IN EACH NOSTRIL
     Route: 045
  36. CLOPIDOGREL [Concomitant]
     Route: 048
  37. AMOXICILLIN [Concomitant]
     Route: 065

REACTIONS (2)
  - DIABETES MELLITUS [None]
  - PANCREATITIS [None]
